FAERS Safety Report 9780712 (Version 2)
Quarter: 2014Q2

REPORT INFORMATION
  Report Type: Spontaneous
  Country: CN (occurrence: CN)
  Receive Date: 20131224
  Receipt Date: 20140515
  Transmission Date: 20141212
  Serious: Yes (Hospitalization)
  Sender: FDA-Public Use
  Company Number: PHHY2013CN149211

PATIENT
  Age: 58 Year
  Sex: Female

DRUGS (1)
  1. CO-DIOVAN [Suspect]
     Indication: HYPERTENSION
     Dosage: 1 DF, QD
     Route: 048
     Dates: start: 20131002, end: 20131215

REACTIONS (5)
  - Haematuria [Recovered/Resolved]
  - Nephrotic syndrome [Unknown]
  - Urine output decreased [Unknown]
  - Oedematous kidney [Unknown]
  - Oliguria [Unknown]
